FAERS Safety Report 6986166-8 (Version None)
Quarter: 2010Q3

REPORT INFORMATION
  Report Type: 
  Country: None (occurrence: None)
  Receive Date: 20100915
  Receipt Date: 20090601
  Transmission Date: 20110219
  Serious: No
  Sender: FDA-Public Use
  Company Number: US-WYE-H09557809

PATIENT
  Sex: Female
  Weight: 51.3 kg

DRUGS (4)
  1. PRISTIQ [Suspect]
     Indication: DEPRESSION
     Route: 048
     Dates: start: 20090401
  2. CYTOMEL [Concomitant]
  3. KLONOPIN [Concomitant]
  4. DEPAKOTE [Concomitant]

REACTIONS (3)
  - ANXIETY [None]
  - DECREASED INTEREST [None]
  - DRUG INEFFECTIVE [None]
